FAERS Safety Report 8596261 (Version 3)
Quarter: 2014Q1

REPORT INFORMATION
  Report Type: Spontaneous
  Country: US (occurrence: US)
  Receive Date: 20120605
  Receipt Date: 20140128
  Transmission Date: 20141002
  Serious: Yes (Disabling, Other)
  Sender: FDA-Public Use
  Company Number: US-ASTRAZENECA-2012SE36034

PATIENT
  Age: 27 Year
  Sex: Male
  Weight: 90.7 kg

DRUGS (17)
  1. NEXIUM [Suspect]
     Indication: GASTROOESOPHAGEAL REFLUX DISEASE
     Route: 048
     Dates: start: 200311, end: 201203
  2. NEXIUM [Suspect]
     Indication: GASTRIC ULCER HAEMORRHAGE
     Route: 048
     Dates: start: 200311, end: 201203
  3. NEXIUM [Suspect]
     Indication: GASTROOESOPHAGEAL REFLUX DISEASE
     Route: 048
     Dates: start: 200311, end: 201203
  4. NEXIUM [Suspect]
     Indication: GASTRIC ULCER HAEMORRHAGE
     Route: 048
     Dates: start: 200311, end: 201203
  5. NEXIUM [Suspect]
     Indication: GASTROOESOPHAGEAL REFLUX DISEASE
     Route: 048
     Dates: start: 20081112
  6. NEXIUM [Suspect]
     Indication: GASTRIC ULCER HAEMORRHAGE
     Route: 048
     Dates: start: 20081112
  7. PRILOSEC OTC [Suspect]
     Route: 048
     Dates: start: 200009, end: 200310
  8. PREVACID [Concomitant]
     Dates: start: 199806, end: 200008
  9. ZANTAC [Concomitant]
     Dates: start: 199304
  10. PEPTO BISMOL [Concomitant]
  11. TUMS [Concomitant]
  12. FLUTICASONE [Concomitant]
     Dates: start: 20081009
  13. ADVAIR DISKUS [Concomitant]
     Dosage: 100/50
     Dates: start: 20081010
  14. THEOPHYLLINE [Concomitant]
     Dates: start: 20081010
  15. PATANOL [Concomitant]
     Dates: start: 20081027
  16. PROMETHAZINE [Concomitant]
  17. NAPROXEN [Concomitant]

REACTIONS (17)
  - Carcinoma in situ of eye [Unknown]
  - Foot fracture [Unknown]
  - Osteoporosis [Unknown]
  - Carpal tunnel syndrome [Unknown]
  - Dyspepsia [Unknown]
  - Migraine [Unknown]
  - Attention deficit/hyperactivity disorder [Unknown]
  - Anxiety [Unknown]
  - Bipolar disorder [Unknown]
  - Arthritis [Unknown]
  - Calcium deficiency [Unknown]
  - Lung disorder [Unknown]
  - Hypothyroidism [Unknown]
  - Vitamin D deficiency [Unknown]
  - Back pain [Unknown]
  - Vomiting [Unknown]
  - Spinal osteoarthritis [Unknown]
